FAERS Safety Report 25183266 (Version 1)
Quarter: 2025Q2

REPORT INFORMATION
  Report Type: Other
  Country: US (occurrence: US)
  Receive Date: 20250410
  Receipt Date: 20250410
  Transmission Date: 20250717
  Serious: Yes (Death)
  Sender: ALVOGEN
  Company Number: US-ALVOGEN-2025096567

PATIENT
  Age: 32 Year
  Sex: Female

DRUGS (3)
  1. BUPRENORPHINE AND NALOXONE [Suspect]
     Active Substance: BUPRENORPHINE HYDROCHLORIDE\NALOXONE HYDROCHLORIDE
     Indication: Intentional product misuse
     Route: 048
  2. ALCOHOL [Suspect]
     Active Substance: ALCOHOL
     Indication: Intentional product misuse
     Route: 048
  3. ACETAMINOPHEN [Suspect]
     Active Substance: ACETAMINOPHEN
     Indication: Intentional product misuse
     Route: 048

REACTIONS (2)
  - Intentional product misuse [Fatal]
  - Incorrect route of product administration [Unknown]
